FAERS Safety Report 6958138-0 (Version None)
Quarter: 2010Q3

REPORT INFORMATION
  Report Type: 
  Country: None (occurrence: None)
  Receive Date: 20100831
  Receipt Date: 20100819
  Transmission Date: 20110219
  Serious: Yes (Life-Threatening, Hospitalization)
  Sender: FDA-Public Use
  Company Number: SE-PFIZER INC-2010004198

PATIENT
  Age: 62 Year
  Sex: Female

DRUGS (6)
  1. SOMATROPIN [Suspect]
     Indication: HYPOPITUITARISM
     Dosage: 0.2 MG, 1X/DAY
     Route: 058
     Dates: start: 20081112, end: 20090615
  2. ATACAND [Concomitant]
     Dosage: 16 MG, 1X/DAY
     Dates: start: 20080707, end: 20100121
  3. SIMVASTATIN [Concomitant]
     Dosage: 20 MG, 2X/DAY AT NIGHT
     Dates: start: 20060512, end: 20091029
  4. LEVOTHYROXINE SODIUM [Concomitant]
     Dosage: 50 UG, 1X/DAY
     Dates: start: 20080129
  5. HYDROCORTISONE ^NYCOMED^ [Concomitant]
     Dosage: 30 MG, DAILY
  6. MINIRIN ^AVENTIS PHARMA^ [Concomitant]
     Dosage: 60 UG, 1X/DAY AT NIGHT
     Dates: start: 20070821

REACTIONS (2)
  - METASTASES TO LYMPH NODES [None]
  - RECTAL CANCER STAGE III [None]
